FAERS Safety Report 5284032-X (Version None)
Quarter: 2007Q2

REPORT INFORMATION
  Report Type: 
  Country: None (occurrence: None)
  Receive Date: 20070402
  Receipt Date: 20070322
  Transmission Date: 20071010
  Serious: Yes (Other)
  Sender: FDA-Public Use
  Company Number: GB-PFIZER INC-2007023550

PATIENT
  Age: 82 Year
  Sex: Male
  Weight: 84.5 kg

DRUGS (10)
  1. DOXAZOSIN MESYLATE [Suspect]
     Indication: HYPERTENSION
     Route: 048
     Dates: start: 20070222, end: 20070228
  2. ALFACALCIDOL [Concomitant]
     Route: 048
  3. AMLODIPINE [Concomitant]
     Indication: HYPERTENSION
     Route: 048
  4. ARANESP [Concomitant]
  5. CALCICHEW [Concomitant]
     Route: 048
  6. ESOMEPRAZOLE MAGNESIUM [Concomitant]
     Route: 048
  7. FUROSEMIDE [Concomitant]
     Route: 048
  8. ISOSORBIDE [Concomitant]
     Route: 048
  9. PERINDOPRIL ERBUMINE [Concomitant]
     Indication: HYPERTENSION
     Route: 048
  10. SIMVASTATIN [Concomitant]
     Route: 048

REACTIONS (1)
  - SWOLLEN TONGUE [None]
